FAERS Safety Report 17430480 (Version 1)
Quarter: 2020Q1

REPORT INFORMATION
  Report Type: Spontaneous
  Country: US (occurrence: US)
  Receive Date: 20200218
  Receipt Date: 20200218
  Transmission Date: 20200409
  Serious: No
  Sender: FDA-Public Use
  Company Number: US-PERRIGO-19US002318

PATIENT

DRUGS (2)
  1. DESONIDE. [Suspect]
     Active Substance: DESONIDE
     Indication: ALOPECIA
     Dosage: UNKNOWN, UNKNOWN
     Route: 061
  2. DESONIDE. [Suspect]
     Active Substance: DESONIDE
     Indication: DERMATOMYOSITIS

REACTIONS (2)
  - Therapeutic product effect incomplete [Unknown]
  - Off label use [Unknown]
